FAERS Safety Report 7659673-2 (Version None)
Quarter: 2011Q3

REPORT INFORMATION
  Report Type: 
  Country: None (occurrence: None)
  Receive Date: 20110805
  Receipt Date: 20110729
  Transmission Date: 20111222
  Serious: Yes (Hospitalization)
  Sender: FDA-Public Use
  Company Number: US-US-EMD SERONO, INC.-7074541

PATIENT
  Sex: Female

DRUGS (1)
  1. REBIF [Suspect]
     Indication: PRODUCT USED FOR UNKNOWN INDICATION
     Route: 058
     Dates: start: 20090824, end: 20110716

REACTIONS (5)
  - ERYTHEMA [None]
  - ASTHENIA [None]
  - URINARY TRACT INFECTION [None]
  - PYREXIA [None]
  - CONVULSION [None]
